FAERS Safety Report 9834606 (Version 2)
Quarter: 2014Q2

REPORT INFORMATION
  Report Type: Spontaneous
  Country: HU (occurrence: HU)
  Receive Date: 20140122
  Receipt Date: 20140528
  Transmission Date: 20141212
  Serious: Yes (Death, Other)
  Sender: FDA-Public Use
  Company Number: HU-CELGENEUS-076-CTHAL-14013378

PATIENT
  Sex: Female

DRUGS (4)
  1. THALIDOMIDE [Suspect]
     Indication: GLIOBLASTOMA MULTIFORME
     Route: 048
  2. THALIDOMIDE [Suspect]
     Indication: MEDULLOBLASTOMA
  3. CELECOXIB [Suspect]
     Indication: GLIOBLASTOMA MULTIFORME
     Route: 048
  4. ETOPOSIDE [Suspect]
     Indication: GLIOBLASTOMA MULTIFORME
     Route: 048

REACTIONS (2)
  - Acute myeloid leukaemia [Unknown]
  - Medulloblastoma [Fatal]
